FAERS Safety Report 16348102 (Version 2)
Quarter: 2019Q2

REPORT INFORMATION
  Report Type: Report from Study
  Country: GB (occurrence: GB)
  Receive Date: 20190523
  Receipt Date: 20190603
  Transmission Date: 20190711
  Serious: Yes (Other)
  Sender: FDA-Public Use
  Company Number: GB-MYLANLABS-2019M1047393

PATIENT
  Age: 72 Year
  Sex: Female

DRUGS (29)
  1. HERCEPTIN [Suspect]
     Active Substance: TRASTUZUMAB
     Dosage: 275 MILLIGRAM
     Route: 042
     Dates: start: 20150818, end: 20151211
  2. DOCETAXEL. [Suspect]
     Active Substance: DOCETAXEL
     Indication: HER-2 POSITIVE BREAST CANCER
     Dosage: 92 MILLIGRAM, 3XW
     Route: 042
     Dates: start: 20150514, end: 20150715
  3. 3M CAVILON ANTIFUNGAL [Concomitant]
     Active Substance: MICONAZOLE NITRATE
     Indication: PROPHYLAXIS
     Dosage: 92 GRAM
     Route: 061
     Dates: start: 20150804
  4. DOMPERIDONE [Concomitant]
     Active Substance: DOMPERIDONE
     Indication: PROPHYLAXIS
     Dosage: 10 MILLIGRAM, QD
     Route: 048
     Dates: start: 20150803, end: 20150805
  5. RANITIDINE. [Concomitant]
     Active Substance: RANITIDINE
     Dosage: 150 MILLIGRAM, QD
     Dates: start: 20150825, end: 20150827
  6. TRASTUZUMAB. [Suspect]
     Active Substance: TRASTUZUMAB
     Dosage: 300 MILLIGRAM, 3XW
     Route: 042
     Dates: start: 20160108, end: 20160405
  7. HERCEPTIN [Suspect]
     Active Substance: TRASTUZUMAB
     Dosage: 300 MILLIGRAM
     Route: 042
     Dates: start: 20150603, end: 20150804
  8. CETIRIZINE [Concomitant]
     Active Substance: CETIRIZINE HYDROCHLORIDE
     Dosage: 10 MILLIGRAM
     Route: 048
     Dates: start: 20150805, end: 20150807
  9. TRASTUZUMAB. [Suspect]
     Active Substance: TRASTUZUMAB
     Indication: BREAST CANCER METASTATIC
     Dosage: 400 MILLIGRAM, 3XW
     Route: 042
     Dates: start: 20150513, end: 20150513
  10. TRASTUZUMAB. [Suspect]
     Active Substance: TRASTUZUMAB
     Dosage: 300 MILLIGRAM, 3XW
     Route: 042
     Dates: start: 20150603, end: 20150604
  11. TRASTUZUMAB. [Suspect]
     Active Substance: TRASTUZUMAB
     Dosage: 184 MILLIGRAM, 3XW
     Route: 042
     Dates: start: 20160426, end: 20160720
  12. DOCETAXEL. [Suspect]
     Active Substance: DOCETAXEL
     Dosage: 86 MILLIGRAM
     Route: 042
     Dates: start: 20150828
  13. DOMPERIDONE [Concomitant]
     Active Substance: DOMPERIDONE
     Dosage: 30 MILLIGRAM, QD
     Route: 048
     Dates: start: 20150803, end: 20150805
  14. RANITIDINE. [Concomitant]
     Active Substance: RANITIDINE
     Dosage: 300 MILLIGRAM, QD
     Route: 048
     Dates: start: 20150825, end: 20150827
  15. CETIRIZINE [Concomitant]
     Active Substance: CETIRIZINE HYDROCHLORIDE
     Dosage: 10 MILLIGRAM
     Route: 048
     Dates: start: 20150825, end: 20150827
  16. RANITIDINE. [Concomitant]
     Active Substance: RANITIDINE
     Dosage: 300 MILLIGRAM, QD
     Route: 048
     Dates: start: 20150805, end: 20150807
  17. DEXAMETHASONE. [Concomitant]
     Active Substance: DEXAMETHASONE
     Dosage: LIQUID
     Route: 047
     Dates: start: 20150714, end: 20150923
  18. HERCEPTIN [Suspect]
     Active Substance: TRASTUZUMAB
     Dosage: LOADING DOSE
     Route: 042
     Dates: start: 20160108, end: 20160405
  19. RANITIDINE. [Concomitant]
     Active Substance: RANITIDINE
     Dosage: 150 MILLIGRAM, QD
     Route: 048
     Dates: start: 20150805, end: 20150807
  20. HERCEPTIN [Suspect]
     Active Substance: TRASTUZUMAB
     Indication: BREAST CANCER METASTATIC
     Dosage: 400 UNK
     Route: 042
     Dates: start: 20150513, end: 20150513
  21. PERTUZUMAB. [Suspect]
     Active Substance: PERTUZUMAB
     Indication: BREAST CANCER METASTATIC
     Dosage: 420 MILLIGRAM, 3XW
     Route: 042
     Dates: start: 20150603, end: 20150807
  22. DEXAMETHASONE. [Concomitant]
     Active Substance: DEXAMETHASONE
     Dosage: 4 MILLIGRAM, QD THREE DAYS PRIOR TO CHEMOTHERAPY
     Route: 048
     Dates: start: 20150803, end: 20150805
  23. CLAVULANIC ACID [Concomitant]
     Active Substance: CLAVULANIC ACID
     Indication: INFECTION
     Dosage: 125 MILLIGRAM, QD
     Route: 048
     Dates: start: 20150804, end: 20150810
  24. CLAVULANIC ACID [Concomitant]
     Active Substance: CLAVULANIC ACID
     Dosage: 375 MILLIGRAM, QD
     Route: 048
     Dates: start: 20150804, end: 20150810
  25. DEXAMETHASONE. [Concomitant]
     Active Substance: DEXAMETHASONE
     Dosage: LIQUID
     Route: 047
     Dates: start: 20150714, end: 20150923
  26. DEXAMETHASONE. [Concomitant]
     Active Substance: DEXAMETHASONE
     Dosage: 2 MILLIGRAM THREE DAYS PRIOR TO CHEMOTHERAPY
     Dates: start: 20150803, end: 20150805
  27. TRASTUZUMAB. [Suspect]
     Active Substance: TRASTUZUMAB
     Dosage: 275 MILLIGRAM, 3XW
     Route: 042
     Dates: start: 20150818, end: 20151211
  28. TRASTUZUMAB. [Suspect]
     Active Substance: TRASTUZUMAB
     Dosage: 148 MILLIGRAM, 3XW
     Route: 042
     Dates: start: 20160810
  29. AMOXYCILLIN                        /00249601/ [Concomitant]
     Active Substance: AMOXICILLIN
     Indication: INFECTION
     Dosage: 1500 MILLIGRAM, QD
     Route: 048
     Dates: start: 20150804, end: 20150810

REACTIONS (15)
  - Lacrimation increased [Not Recovered/Not Resolved]
  - Nail dystrophy [Not Recovered/Not Resolved]
  - Fatigue [Recovered/Resolved]
  - Neuropathy peripheral [Not Recovered/Not Resolved]
  - Anaphylactic reaction [Recovered/Resolved]
  - Dry skin [Recovered/Resolved]
  - Ejection fraction decreased [Unknown]
  - Memory impairment [Recovered/Resolved]
  - Catheter site haemorrhage [Recovered/Resolved]
  - Panic attack [Not Recovered/Not Resolved]
  - Pruritus [Recovered/Resolved]
  - Axillary pain [Unknown]
  - Chest discomfort [Recovered/Resolved]
  - Constipation [Not Recovered/Not Resolved]
  - Insomnia [Not Recovered/Not Resolved]

NARRATIVE: CASE EVENT DATE: 20150716
